FAERS Safety Report 23126913 (Version 1)
Quarter: 2023Q4

REPORT INFORMATION
  Report Type: Spontaneous
  Country: EG (occurrence: EG)
  Receive Date: 20231030
  Receipt Date: 20231030
  Transmission Date: 20240109
  Serious: Yes (Other)
  Sender: FDA-Public Use
  Company Number: EG-002147023-NVSC2023EG203687

PATIENT
  Sex: Female

DRUGS (4)
  1. FEMARA [Suspect]
     Active Substance: LETROZOLE
     Indication: Breast cancer metastatic
     Dosage: 2.5 MG, QD (ONE TABLET PER DAY)
     Route: 048
     Dates: start: 202303
  2. KISQALI [Suspect]
     Active Substance: RIBOCICLIB
     Indication: Breast cancer metastatic
     Dosage: 200 MG, QD (200 MG (THREE TABLETS ONCE PER DAY FOR 21 DAYS AND 1 WEEK OFF))
     Route: 048
     Dates: start: 202306
  3. ZOMETA [Suspect]
     Active Substance: ZOLEDRONIC ACID
     Indication: Blood calcium
     Dosage: UNK (SOLUTION FOR INJECTION, ONE INJECTION EVERY 6 MONTHS)
     Route: 065
     Dates: start: 202303
  4. GOSERELIN [Concomitant]
     Active Substance: GOSERELIN
     Indication: Product used for unknown indication
     Dosage: 10.8 MG
     Route: 058

REACTIONS (3)
  - Breast cancer metastatic [Unknown]
  - Malignant neoplasm progression [Unknown]
  - Fatigue [Recovering/Resolving]
